FAERS Safety Report 5200083-5 (Version None)
Quarter: 2007Q1

REPORT INFORMATION
  Report Type: 
  Country: None (occurrence: None)
  Receive Date: 20070105
  Receipt Date: 20070102
  Transmission Date: 20070707
  Serious: Yes (Other)
  Sender: FDA-Public Use
  Company Number: M-06-0999

PATIENT
  Age: 69 Year
  Sex: Female

DRUGS (11)
  1. LANOXIN [Suspect]
     Indication: ATRIAL FIBRILLATION
     Route: 048
  2. AMIODARONE HCL [Suspect]
     Indication: ATRIAL FIBRILLATION
     Dosage: 200MG TWICE PER DAY
     Route: 048
  3. COUMADIN [Concomitant]
     Dates: start: 19920101
  4. LEVOTHYROXINE SODIUM [Concomitant]
     Dates: start: 20010101
  5. MIRAPEX [Concomitant]
     Dates: start: 20010101
  6. TORSEMIDE [Concomitant]
     Dates: start: 19920101
  7. XANAX [Concomitant]
  8. CALCIUM + VITAMIN D [Concomitant]
  9. FOLIC ACID [Concomitant]
  10. MULTI-VITAMIN [Concomitant]
  11. TOPROL-XL [Concomitant]

REACTIONS (4)
  - CATARACT [None]
  - DRY SKIN [None]
  - HALO VISION [None]
  - SKIN EXFOLIATION [None]
